FAERS Safety Report 6752369-0 (Version None)
Quarter: 2010Q2

REPORT INFORMATION
  Report Type: 
  Country: None (occurrence: None)
  Receive Date: 20100601
  Receipt Date: 20100601
  Transmission Date: 20101027
  Serious: No
  Sender: FDA-Public Use
  Company Number: None

PATIENT
  Age: 55 Year
  Sex: Female
  Weight: 54.4316 kg

DRUGS (2)
  1. ZOLPIDEM [Suspect]
     Indication: INSOMNIA
     Dosage: 5 MG NIGHTLY PO
     Route: 048
     Dates: start: 20100510, end: 20100529
  2. ZOLPIDEM [Suspect]
     Indication: INSOMNIA
     Dosage: 5MG NIGHTLY PO
     Route: 048
     Dates: start: 20100410, end: 20100510

REACTIONS (3)
  - DRUG INEFFECTIVE [None]
  - PRODUCT QUALITY ISSUE [None]
  - PRODUCT SUBSTITUTION ISSUE [None]
